FAERS Safety Report 4570310-6 (Version None)
Quarter: 2005Q1

REPORT INFORMATION
  Report Type: 
  Country: None (occurrence: None)
  Receive Date: 20050127
  Receipt Date: 20050127
  Transmission Date: 20050727
  Serious: Yes (Hospitalization)
  Sender: FDA-Public Use
  Company Number: None

PATIENT
  Age: 20 Year
  Sex: Male
  Weight: 49.1 kg

DRUGS (15)
  1. TACROLIMUS  1MG  FUJISAWA [Suspect]
     Indication: LUNG TRANSPLANT
     Dosage: 3MG  TWO TIMES/DAY ORAL
     Route: 048
  2. PHYTONADIONE [Concomitant]
  3. FAMOTIDINE [Concomitant]
  4. DILTIAZEM [Concomitant]
  5. GANCICLOVIR [Concomitant]
  6. DOCUSATE SODIUM [Concomitant]
  7. SULFAMETHOXAZOLE + TRIMETHOPRIM [Concomitant]
  8. CLONIDINE [Concomitant]
  9. FERROUS SULFATE TAB [Concomitant]
  10. ADEKS [Concomitant]
  11. TEGASEROD [Concomitant]
  12. CREON [Concomitant]
  13. TRAMADOL HCL [Concomitant]
  14. ALPRAZOLAM [Concomitant]
  15. CYCLOBENZAPRINE [Concomitant]

REACTIONS (6)
  - CONDITION AGGRAVATED [None]
  - DRUG LEVEL CHANGED [None]
  - DRUG LEVEL INCREASED [None]
  - LUNG TRANSPLANT REJECTION [None]
  - RENAL IMPAIRMENT [None]
  - THROMBOCYTOPENIA [None]
